FAERS Safety Report 4624571-5 (Version None)
Quarter: 2005Q2

REPORT INFORMATION
  Report Type: 
  Country: None (occurrence: None)
  Receive Date: 20050325
  Receipt Date: 20050120
  Transmission Date: 20051028
  Serious: No
  Sender: FDA-Public Use
  Company Number: USA050188822

PATIENT
  Age: 86 Year
  Sex: Female

DRUGS (3)
  1. FORTEO [Suspect]
     Indication: OSTEOPOROSIS
     Dosage: 20 UG DAY
     Dates: start: 20041001
  2. CALCIUM GLUCONATE [Concomitant]
  3. MULTI-VITAMIN [Concomitant]

REACTIONS (2)
  - MUSCLE SPASMS [None]
  - PARAESTHESIA [None]
